FAERS Safety Report 10573620 (Version 4)
Quarter: 2015Q2

REPORT INFORMATION
  Report Type: Spontaneous
  Country: US (occurrence: US)
  Receive Date: 20141110
  Receipt Date: 20150520
  Transmission Date: 20150821
  Serious: Yes (Other)
  Sender: FDA-Public Use
  Company Number: US-GLAXOSMITHKLINE-US2014GSK018629

PATIENT
  Sex: Female

DRUGS (10)
  1. ADVAIR HFA [Suspect]
     Active Substance: FLUTICASONE PROPIONATE\SALMETEROL XINAFOATE
     Indication: ASTHMA
     Dosage: UNK
  2. HYDROCHLOROTHIAZIDE. [Concomitant]
     Active Substance: HYDROCHLOROTHIAZIDE
  3. SPIRONOLACTONE. [Concomitant]
     Active Substance: SPIRONOLACTONE
  4. LUTEINE [Concomitant]
  5. AMITRIPTYLINE [Concomitant]
     Active Substance: AMITRIPTYLINE
  6. MIRALAX [Concomitant]
     Active Substance: POLYETHYLENE GLYCOL 3350
  7. CYCLOBENZAPRINE [Concomitant]
     Active Substance: CYCLOBENZAPRINE
  8. ATENOLOL. [Concomitant]
     Active Substance: ATENOLOL
  9. ADVAIR HFA [Suspect]
     Active Substance: FLUTICASONE PROPIONATE\SALMETEROL XINAFOATE
     Indication: DYSPNOEA
     Dosage: 1 PUFF(S), BID
     Route: 055
     Dates: start: 200706
  10. PRESERVISION [Concomitant]
     Active Substance: MINERALS\VITAMINS

REACTIONS (13)
  - Dyspnoea [Unknown]
  - Macular degeneration [Unknown]
  - Allergic sinusitis [Unknown]
  - Arthritis [Unknown]
  - Malaise [Unknown]
  - Cataract [Unknown]
  - Vitreous floaters [Unknown]
  - Oropharyngeal pain [Unknown]
  - Retinal disorder [Not Recovered/Not Resolved]
  - Dysphonia [Not Recovered/Not Resolved]
  - Cerebrovascular disorder [Unknown]
  - Cardiac disorder [Unknown]
  - Multiple allergies [Unknown]

NARRATIVE: CASE EVENT DATE: 2007
